FAERS Safety Report 14238823 (Version 1)
Quarter: 2017Q4

REPORT INFORMATION
  Report Type: Spontaneous
  Country: US (occurrence: None)
  Receive Date: 20171127
  Receipt Date: 20171127
  Transmission Date: 20180321
  Serious: No
  Sender: FDA-Public Use
  Company Number: None

PATIENT
  Age: 61 Year
  Sex: Male

DRUGS (6)
  1. CIMZIA [Suspect]
     Active Substance: CERTOLIZUMAB PEGOL
  2. ENTYVIO [Suspect]
     Active Substance: VEDOLIZUMAB
  3. REMICADE [Suspect]
     Active Substance: INFLIXIMAB
  4. HUMIRA [Suspect]
     Active Substance: ADALIMUMAB
  5. IMURAN [Suspect]
     Active Substance: AZATHIOPRINE
  6. STELARA [Concomitant]
     Active Substance: USTEKINUMAB

REACTIONS (3)
  - Therapy non-responder [None]
  - Pancreatitis [None]
  - Drug specific antibody present [None]

NARRATIVE: CASE EVENT DATE: 20171127
